FAERS Safety Report 11599534 (Version 1)
Quarter: 2015Q3

REPORT INFORMATION
  Report Type: Spontaneous
  Country: US (occurrence: US)
  Receive Date: 20150916
  Receipt Date: 20150916
  Transmission Date: 20151125
  Serious: No
  Sender: FDA-Public Use
  Company Number: US-ELI_LILLY_AND_COMPANY-US200711003321

PATIENT
  Age: 39 Year
  Sex: Female
  Weight: 62.13 kg

DRUGS (10)
  1. ATENOLOL. [Concomitant]
     Active Substance: ATENOLOL
  2. PLAVIX [Concomitant]
     Active Substance: CLOPIDOGREL BISULFATE
  3. AMARYL [Concomitant]
     Active Substance: GLIMEPIRIDE
  4. DETROL [Concomitant]
     Active Substance: TOLTERODINE TARTRATE
  5. FORTEO [Suspect]
     Active Substance: TERIPARATIDE
     Indication: OSTEOPOROSIS
     Dosage: 20 UG, DAILY (1/D)
     Dates: start: 20070806, end: 20071107
  6. LISINOPRIL. [Concomitant]
     Active Substance: LISINOPRIL
  7. NORVASC [Concomitant]
     Active Substance: AMLODIPINE BESYLATE
  8. DIDRONEL [Concomitant]
     Active Substance: ETIDRONATE DISODIUM
  9. ASA [Concomitant]
     Active Substance: ASPIRIN
  10. DIAZEPAM. [Concomitant]
     Active Substance: DIAZEPAM

REACTIONS (8)
  - Injection site pain [Recovering/Resolving]
  - Injection site pruritus [Recovering/Resolving]
  - Injection site haemorrhage [Unknown]
  - Injection site bruising [Recovering/Resolving]
  - Pain [Recovered/Resolved]
  - Dyspepsia [Recovered/Resolved]
  - Myalgia [Unknown]
  - Burning sensation [Unknown]

NARRATIVE: CASE EVENT DATE: 197809
